FAERS Safety Report 6380726-3 (Version None)
Quarter: 2009Q3

REPORT INFORMATION
  Report Type: 
  Country: None (occurrence: None)
  Receive Date: 20090929
  Receipt Date: 20090918
  Transmission Date: 20100115
  Serious: Yes (Hospitalization, Other)
  Sender: FDA-Public Use
  Company Number: GB-PFIZER INC-2009271548

PATIENT
  Age: 32 Year

DRUGS (13)
  1. ZYVOX [Suspect]
     Indication: INFECTION
     Dosage: 600 MG, 2X/DAY
     Dates: start: 20020711, end: 20020803
  2. CICLOSPORIN [Concomitant]
  3. OMEPRAZOLE [Concomitant]
  4. PARACETAMOL [Concomitant]
  5. DIHYDROCODEINE [Concomitant]
  6. SIMVASTATIN [Concomitant]
  7. ACYCLOVIR [Concomitant]
  8. TITRALAC [Concomitant]
  9. TRIMETHOPRIM [Concomitant]
  10. DOPAMINE [Concomitant]
  11. MYCOPHENOLATE MOFETIL [Concomitant]
  12. DAPSONE [Concomitant]
  13. HEPARIN [Concomitant]

REACTIONS (5)
  - BIOPSY BONE MARROW ABNORMAL [None]
  - BONE MARROW DISORDER [None]
  - CONTUSION [None]
  - ERYTHROPOIESIS ABNORMAL [None]
  - THROMBOCYTOPENIA [None]
